FAERS Safety Report 10352899 (Version 1)
Quarter: 2014Q3

REPORT INFORMATION
  Report Type: Spontaneous
  Country: US (occurrence: US)
  Receive Date: 20140730
  Receipt Date: 20140730
  Transmission Date: 20150326
  Serious: No
  Sender: FDA-Public Use
  Company Number: US-ABBVIE-14P-163-1227630-00

PATIENT
  Age: 41 Year
  Sex: Female
  Weight: 71.73 kg

DRUGS (6)
  1. SYNTHROID [Suspect]
     Active Substance: LEVOTHYROXINE SODIUM
     Dosage: MONDAY THROUGH SATURDAY
     Dates: end: 201403
  2. SYNTHROID [Suspect]
     Active Substance: LEVOTHYROXINE SODIUM
     Dosage: ONLY ON SUNDAYS
     Dates: end: 201403
  3. ESTRADIOL. [Concomitant]
     Active Substance: ESTRADIOL
     Indication: INFERTILITY FEMALE
  4. HEPARIN [Concomitant]
     Active Substance: HEPARIN SODIUM
     Indication: INFERTILITY FEMALE
  5. PROGESTERONE. [Concomitant]
     Active Substance: PROGESTERONE
     Indication: INFERTILITY FEMALE
  6. SYNTHROID [Suspect]
     Active Substance: LEVOTHYROXINE SODIUM
     Indication: HYPOTHYROIDISM
     Dates: start: 20140315

REACTIONS (3)
  - Vomiting in pregnancy [Not Recovered/Not Resolved]
  - Infertility female [Not Recovered/Not Resolved]
  - Vomiting [Not Recovered/Not Resolved]

NARRATIVE: CASE EVENT DATE: 2008
